FAERS Safety Report 5589412-0 (Version None)
Quarter: 2008Q1

REPORT INFORMATION
  Report Type: 
  Country: None (occurrence: None)
  Receive Date: 20080109
  Receipt Date: 20071228
  Transmission Date: 20080703
  Serious: Yes (Disabling)
  Sender: FDA-Public Use
  Company Number: 2008AL000002

PATIENT
  Age: 55 Year
  Sex: Female

DRUGS (2)
  1. NAPROXEN [Suspect]
  2. ATENOLOL [Concomitant]

REACTIONS (6)
  - CUTANEOUS LUPUS ERYTHEMATOSUS [None]
  - DRUG ERUPTION [None]
  - LICHENOID KERATOSIS [None]
  - LIP PAIN [None]
  - NO THERAPEUTIC RESPONSE [None]
  - STOMATITIS [None]
